FAERS Safety Report 17296424 (Version 1)
Quarter: 2020Q1

REPORT INFORMATION
  Report Type: Spontaneous
  Country: FR (occurrence: FR)
  Receive Date: 20200121
  Receipt Date: 20200121
  Transmission Date: 20200409
  Serious: Yes (Hospitalization)
  Sender: FDA-Public Use
  Company Number: FR-MYLANLABS-2020M1004938

PATIENT
  Age: 17 Year
  Sex: Male
  Weight: 96 kg

DRUGS (1)
  1. RISPERIDONE. [Suspect]
     Active Substance: RISPERIDONE
     Indication: BEHAVIOUR DISORDER
     Dosage: 2.5 MILLIGRAM, QD
     Route: 048
     Dates: start: 2010

REACTIONS (1)
  - Intussusception [Not Recovered/Not Resolved]

NARRATIVE: CASE EVENT DATE: 20190930
